FAERS Safety Report 9189846 (Version 1)
Quarter: 2013Q1

REPORT INFORMATION
  Report Type: Spontaneous
  Country: FR (occurrence: FR)
  Receive Date: 20130326
  Receipt Date: 20130326
  Transmission Date: 20140127
  Serious: Yes (Other)
  Sender: FDA-Public Use
  Company Number: PHHY2013FR027862

PATIENT
  Age: 55 Year
  Sex: Female

DRUGS (6)
  1. FEMARA [Suspect]
     Dosage: 2.5 MG, UNK
     Route: 048
     Dates: start: 20120830, end: 201210
  2. SEROPLEX [Concomitant]
     Dosage: 10 MG, QD
     Route: 048
     Dates: start: 2010
  3. LYSANXIA [Concomitant]
     Dosage: 40 MG, 1.5 DF QD
     Route: 048
     Dates: start: 2010
  4. OROCAL VITAMINE D3 [Concomitant]
     Dosage: 500 MG/200 IU
     Route: 048
  5. XYZALL [Concomitant]
     Route: 048
  6. FOSAVANCE [Concomitant]
     Dosage: 1 DF, UNK
     Route: 048

REACTIONS (1)
  - Cell death [Recovered/Resolved]
